FAERS Safety Report 6245543-3 (Version None)
Quarter: 2009Q2

REPORT INFORMATION
  Report Type: 
  Country: None (occurrence: None)
  Receive Date: 20090625
  Receipt Date: 20090622
  Transmission Date: 20091009
  Serious: Yes (Other)
  Sender: FDA-Public Use
  Company Number: US-RB-017201-09

PATIENT
  Sex: Male
  Weight: 45 kg

DRUGS (2)
  1. SUBOXONE [Suspect]
     Route: 060
     Dates: start: 20081101, end: 20090301
  2. SUBOXONE [Suspect]
     Route: 060
     Dates: start: 20090501, end: 20090615

REACTIONS (4)
  - ABDOMINAL PAIN [None]
  - ABNORMAL LOSS OF WEIGHT [None]
  - FAECAL INCONTINENCE [None]
  - GRAND MAL CONVULSION [None]
